FAERS Safety Report 6115221-X (Version None)
Quarter: 2009Q1

REPORT INFORMATION
  Report Type: 
  Country: None (occurrence: None)
  Receive Date: 20090313
  Receipt Date: 20090303
  Transmission Date: 20090719
  Serious: Yes (Other)
  Sender: FDA-Public Use
  Company Number: BR-PFIZER INC-2005131086

PATIENT

DRUGS (8)
  1. ZOLOFT [Suspect]
     Indication: DEPRESSION
     Dosage: 50 MG, UNK
     Route: 048
  2. CELEBRA [Suspect]
     Indication: ARTHRITIS
     Dosage: 200 MG, 1X/DAY
     Route: 048
     Dates: start: 20090201
  3. EUTHYROX [Concomitant]
     Route: 048
     Dates: start: 20000101
  4. RENITEC [Concomitant]
     Route: 048
  5. BENICAR [Concomitant]
     Dosage: 20 MG, UNK
     Route: 065
  6. NEXIUM [Concomitant]
     Dosage: 40 MG, UNK
     Route: 065
  7. TROPICAMIDE [Concomitant]
     Dosage: UNK
     Route: 065
  8. PHENYLEPHRINE [Suspect]

REACTIONS (17)
  - ABDOMINAL DISTENSION [None]
  - ANXIETY [None]
  - ARTHRALGIA [None]
  - CONFUSIONAL STATE [None]
  - DEPRESSION [None]
  - DRUG INEFFECTIVE [None]
  - GASTROINTESTINAL INFLAMMATION [None]
  - HEART RATE INCREASED [None]
  - HYPERTENSION [None]
  - INSOMNIA [None]
  - MICTURITION FREQUENCY DECREASED [None]
  - NERVOUSNESS [None]
  - PAIN IN EXTREMITY [None]
  - RENAL PAIN [None]
  - SCIATICA [None]
  - UVEITIS [None]
  - VISION BLURRED [None]
